FAERS Safety Report 6751404-3 (Version None)
Quarter: 2010Q2

REPORT INFORMATION
  Report Type: 
  Country: None (occurrence: None)
  Receive Date: 20100602
  Receipt Date: 20100525
  Transmission Date: 20101027
  Serious: Yes (Hospitalization, Other)
  Sender: FDA-Public Use
  Company Number: US-SANOFI-AVENTIS-2010SA016332

PATIENT
  Age: 70 Year
  Sex: Male
  Weight: 92 kg

DRUGS (10)
  1. PLAVIX [Suspect]
     Route: 048
     Dates: start: 20081228, end: 20100309
  2. PLAVIX [Suspect]
     Route: 048
     Dates: start: 20081228, end: 20100309
  3. ANTIHYPERTENSIVES [Concomitant]
  4. ASPIRIN [Concomitant]
     Dates: end: 20100309
  5. ASPIRIN [Concomitant]
  6. LISINOPRIL [Concomitant]
     Indication: BLOOD PRESSURE
     Dates: start: 20090101
  7. AMLODIPINE [Concomitant]
     Indication: BLOOD PRESSURE
     Dates: start: 20090101
  8. SIMVASTATIN [Concomitant]
     Dates: start: 20090101
  9. ZYRTEC [Concomitant]
     Dates: start: 20090101
  10. METOPROLOL TARTRATE [Concomitant]
     Indication: BLOOD PRESSURE
     Dates: start: 20090602

REACTIONS (4)
  - ATELECTASIS [None]
  - HAEMOPTYSIS [None]
  - LUNG INFILTRATION [None]
  - LUNG NEOPLASM [None]
